FAERS Safety Report 7089603-6 (Version None)
Quarter: 2010Q4

REPORT INFORMATION
  Report Type: 
  Country: None (occurrence: None)
  Receive Date: 20101108
  Receipt Date: 20101102
  Transmission Date: 20110411
  Serious: Yes (Death, Hospitalization)
  Sender: FDA-Public Use
  Company Number: PHHY2010FR72489

PATIENT
  Age: 60 Year
  Sex: Male

DRUGS (3)
  1. AFINITOR [Suspect]
     Indication: METASTATIC RENAL CELL CARCINOMA
     Dosage: 10 MG, UNK
     Route: 048
     Dates: start: 20100923, end: 20101004
  2. KARDEGIC [Concomitant]
     Dosage: UNK
  3. TRIATEC [Concomitant]
     Dosage: UNK

REACTIONS (4)
  - DYSPNOEA [None]
  - INTERSTITIAL LUNG DISEASE [None]
  - LUNG DISORDER [None]
  - PLEURAL EFFUSION [None]
